FAERS Safety Report 13236333 (Version 1)
Quarter: 2017Q1

REPORT INFORMATION
  Report Type: Spontaneous
  Country: US (occurrence: US)
  Receive Date: 20170215
  Receipt Date: 20170215
  Transmission Date: 20170428
  Serious: Yes (Hospitalization)
  Sender: FDA-Public Use
  Company Number: US-LUNDBECK-DKLU2026283

PATIENT
  Age: 1 Year
  Sex: Male

DRUGS (3)
  1. ONFI [Suspect]
     Active Substance: CLOBAZAM
     Indication: SEIZURE
     Dosage: START DATE UNK BUT PRIOR TO /NOV/2015 ABNORMAL EEG
     Route: 048
  2. ONFI [Suspect]
     Active Substance: CLOBAZAM
     Indication: INFANTILE SPASMS
     Route: 048
  3. ONFI [Suspect]
     Active Substance: CLOBAZAM
     Route: 048

REACTIONS (5)
  - Seizure [Unknown]
  - Unresponsive to stimuli [Unknown]
  - Asthma [Unknown]
  - Pigmentation disorder [Unknown]
  - Constipation [Unknown]

NARRATIVE: CASE EVENT DATE: 201607
